FAERS Safety Report 20444650 (Version 2)
Quarter: 2022Q2

REPORT INFORMATION
  Report Type: Report from Study
  Country: JP (occurrence: JP)
  Receive Date: 20220208
  Receipt Date: 20220624
  Transmission Date: 20220721
  Serious: Yes (Hospitalization, Disabling)
  Sender: FDA-Public Use
  Company Number: JP-RECORDATI RARE DISEASE INC.-2021003674

PATIENT
  Age: 0 Year
  Sex: Male
  Weight: .944 kg

DRUGS (25)
  1. NEOPROFEN [Suspect]
     Active Substance: IBUPROFEN LYSINE
     Indication: Patent ductus arteriosus
     Dosage: 10 MILLIGRAM
     Route: 042
     Dates: start: 20210825, end: 20210825
  2. NEOPROFEN [Suspect]
     Active Substance: IBUPROFEN LYSINE
     Dosage: 10 MILLIGRAM
     Route: 042
     Dates: start: 20210831, end: 20210831
  3. NEOPROFEN [Suspect]
     Active Substance: IBUPROFEN LYSINE
     Dosage: 5 MILLIGRAM
     Route: 042
     Dates: start: 20210901, end: 20210901
  4. NEOPROFEN [Suspect]
     Active Substance: IBUPROFEN LYSINE
     Dosage: 10 MILLIGRAM
     Route: 042
     Dates: start: 20210904, end: 20210904
  5. NEOPROFEN [Suspect]
     Active Substance: IBUPROFEN LYSINE
     Dosage: 5 MILLIGRAM
     Route: 042
     Dates: start: 20210905, end: 20210905
  6. NEOPROFEN [Suspect]
     Active Substance: IBUPROFEN LYSINE
     Dosage: 5 MILLIGRAM
     Route: 042
     Dates: start: 20210906, end: 20210906
  7. NEOPROFEN [Suspect]
     Active Substance: IBUPROFEN LYSINE
     Dosage: 10 MILLIGRAM
     Route: 042
     Dates: start: 20210913, end: 20210913
  8. NEOPROFEN [Suspect]
     Active Substance: IBUPROFEN LYSINE
     Dosage: 5 MILLIGRAM
     Route: 042
     Dates: start: 20210914, end: 20210914
  9. NEOPROFEN [Suspect]
     Active Substance: IBUPROFEN LYSINE
     Dosage: 5 MILLIGRAM
     Route: 042
     Dates: start: 20210915, end: 20210915
  10. AMPICILLIN SODIUM [Concomitant]
     Active Substance: AMPICILLIN SODIUM
     Indication: Prophylaxis
     Dosage: UNK
     Route: 042
     Dates: start: 20210822, end: 20210826
  11. FENTANYL [Concomitant]
     Active Substance: FENTANYL
     Indication: Sedation
     Dosage: UNK
     Route: 042
     Dates: start: 20210823, end: 20210830
  12. PLEAMIN P [Concomitant]
     Indication: Nutritional supplementation
     Dosage: UNK
     Route: 042
     Dates: start: 20210823, end: 20210912
  13. GENTAMICIN [Concomitant]
     Active Substance: GENTAMICIN
     Indication: Prophylaxis
     Dosage: UNK
     Route: 042
     Dates: start: 20210823, end: 20210825
  14. SOYBEAN OIL [Concomitant]
     Active Substance: SOYBEAN OIL
     Indication: Nutritional supplementation
     Dosage: UNK
     Route: 042
     Dates: start: 20210824, end: 20210910
  15. PHENOBARBITAL SODIUM [Concomitant]
     Active Substance: PHENOBARBITAL SODIUM
     Indication: Intraventricular haemorrhage
     Dosage: UNK
     Route: 042
     Dates: start: 20210826, end: 20210913
  16. PHENOBARBITAL SODIUM [Concomitant]
     Active Substance: PHENOBARBITAL SODIUM
     Indication: Prophylaxis
  17. MIDAZOLAM HYDROCHLORIDE [Concomitant]
     Active Substance: MIDAZOLAM HYDROCHLORIDE
     Indication: Intraventricular haemorrhage
     Dosage: UNK
     Route: 042
     Dates: start: 20210830, end: 20210831
  18. MIDAZOLAM HYDROCHLORIDE [Concomitant]
     Active Substance: MIDAZOLAM HYDROCHLORIDE
     Indication: Posthaemorrhagic hydrocephalus
     Dosage: UNK
     Route: 042
     Dates: start: 20210906, end: 20210906
  19. MIDAZOLAM HYDROCHLORIDE [Concomitant]
     Active Substance: MIDAZOLAM HYDROCHLORIDE
     Dosage: UNK
     Route: 042
     Dates: start: 20210907, end: 20210907
  20. MIDAZOLAM HYDROCHLORIDE [Concomitant]
     Active Substance: MIDAZOLAM HYDROCHLORIDE
     Dosage: UNK
     Route: 042
     Dates: start: 20210910, end: 20220916
  21. GASTER [Concomitant]
     Active Substance: FAMOTIDINE
     Indication: Gastric haemorrhage
     Dosage: UNK
     Route: 042
     Dates: start: 20210902, end: 20210907
  22. CAFFEINE [Concomitant]
     Active Substance: CAFFEINE
     Indication: Respiratory disorder
     Dosage: UNK
     Route: 042
     Dates: start: 20210908, end: 20211112
  23. CAFFEINE [Concomitant]
     Active Substance: CAFFEINE
     Indication: Apnoeic attack
     Dosage: UNK
     Route: 048
     Dates: start: 20210912, end: 20210917
  24. CAFFEINE [Concomitant]
     Active Substance: CAFFEINE
     Dosage: UNK
  25. PHENOBARBITAL [Concomitant]
     Active Substance: PHENOBARBITAL
     Indication: Prophylaxis
     Dosage: UNK
     Route: 048
     Dates: start: 20210915, end: 20211021

REACTIONS (9)
  - Pulmonary haemorrhage [Recovered/Resolved]
  - Posthaemorrhagic hydrocephalus [Recovered/Resolved with Sequelae]
  - Retinopathy of prematurity [Recovering/Resolving]
  - Intraventricular haemorrhage [Recovered/Resolved with Sequelae]
  - Abnormal clotting factor [Recovered/Resolved]
  - Platelet count decreased [Recovered/Resolved]
  - Gastric haemorrhage [Recovered/Resolved]
  - Anaemia [Recovering/Resolving]
  - Urine output decreased [Recovered/Resolved]

NARRATIVE: CASE EVENT DATE: 20210826
